FAERS Safety Report 21679010 (Version 1)
Quarter: 2022Q4

REPORT INFORMATION
  Report Type: Spontaneous
  Country: US (occurrence: US)
  Receive Date: 20221204
  Receipt Date: 20221204
  Transmission Date: 20230113
  Serious: No
  Sender: FDA-Public Use
  Company Number: US-drreddys-SPO/USA/22/0157379

PATIENT
  Age: 40 Year
  Sex: Female

DRUGS (1)
  1. ACCUTANE [Suspect]
     Active Substance: ISOTRETINOIN
     Indication: Product used for unknown indication

REACTIONS (6)
  - Chapped lips [Unknown]
  - Dry skin [Unknown]
  - Hypercholesterolaemia [Unknown]
  - Blood cholesterol increased [Unknown]
  - Lip dry [Unknown]
  - Blood triglycerides increased [Unknown]
